FAERS Safety Report 8142665-7 (Version None)
Quarter: 2012Q1

REPORT INFORMATION
  Report Type: 
  Country: None (occurrence: None)
  Receive Date: 20120216
  Receipt Date: 20120210
  Transmission Date: 20120608
  Serious: Yes (Other)
  Sender: FDA-Public Use
  Company Number: BR-PFIZER INC-2012038211

PATIENT
  Age: 72 Year
  Sex: Female

DRUGS (2)
  1. XALATAN [Suspect]
     Dosage: 3 UG, 2X/DAY
     Route: 047
     Dates: start: 20110819
  2. TIMOLOL MALEATE [Concomitant]
     Dosage: UNK

REACTIONS (1)
  - RETINAL DETACHMENT [None]
